FAERS Safety Report 9512079 (Version 1)
Quarter: 2013Q1

REPORT INFORMATION
  Report Type: Spontaneous
  Country: US (occurrence: None)
  Receive Date: 20130305
  Receipt Date: 20130305
  Transmission Date: 20140127
  Serious: Yes (Other)
  Sender: FDA-Public Use
  Company Number: 163-21880-11120313

PATIENT
  Age: 47 Year
  Sex: Female

DRUGS (7)
  1. REVLIMID (LENALIDOMIDE) (25 MILLIGRAM, CAPSULES) [Suspect]
     Indication: PLASMA CELL MYELOMA
     Dosage: 25 MG, 1 IN 1 D, PO
     Route: 048
     Dates: start: 20110509
  2. DECADRON (DEXAMETHASONE) [Concomitant]
  3. HYDROCODONE (HYDROCODONE) [Concomitant]
  4. LEVOTHYROXINE (LEVOTHYROXINE) [Concomitant]
  5. LORATIDINE [Concomitant]
  6. VENLAFAXINE (VENLAFAXINE) [Concomitant]
  7. ZONISAMIDE (ZONISAMIDE) UNKNOWN [Concomitant]

REACTIONS (2)
  - Platelet count decreased [None]
  - Conjunctivitis infective [None]
